FAERS Safety Report 7669755-7 (Version None)
Quarter: 2011Q3

REPORT INFORMATION
  Report Type: 
  Country: None (occurrence: None)
  Receive Date: 20110808
  Receipt Date: 20110803
  Transmission Date: 20111222
  Serious: Yes (Hospitalization)
  Sender: FDA-Public Use
  Company Number: GB-ABBOTT-11P-167-0844140-00

PATIENT
  Sex: Male

DRUGS (2)
  1. NSAID'S [Concomitant]
     Indication: PRODUCT USED FOR UNKNOWN INDICATION
  2. FENOFIBRATE [Suspect]
     Indication: PRODUCT USED FOR UNKNOWN INDICATION
     Dates: start: 20080101

REACTIONS (1)
  - RENAL FAILURE ACUTE [None]
